FAERS Safety Report 5100821-6 (Version None)
Quarter: 2006Q3

REPORT INFORMATION
  Report Type: 
  Country: None (occurrence: None)
  Receive Date: 20060906
  Receipt Date: 20060821
  Transmission Date: 20061208
  Serious: Yes (Hospitalization)
  Sender: FDA-Public Use
  Company Number: PHHO2006JP04106

PATIENT
  Age: 79 Year
  Sex: Male
  Weight: 41.0052 kg

DRUGS (4)
  1. VISUDYNE [Suspect]
     Indication: MACULAR DEGENERATION
     Dosage: 4 DAILY IV
     Route: 042
     Dates: start: 20050121, end: 20050121
  2. BROCIN [Concomitant]
  3. HOKUNALIN [Concomitant]
  4. HARNAL [Concomitant]

REACTIONS (4)
  - INCONTINENCE [None]
  - PROSTATITIS [None]
  - RETINAL HAEMORRHAGE [None]
  - URINARY INCONTINENCE [None]
